FAERS Safety Report 12530749 (Version 2)
Quarter: 2016Q3

REPORT INFORMATION
  Report Type: Spontaneous
  Country: CH (occurrence: CH)
  Receive Date: 20160706
  Receipt Date: 20160708
  Transmission Date: 20161109
  Serious: Yes (Life-Threatening, Hospitalization)
  Sender: FDA-Public Use
  Company Number: CH-PFIZER INC-2016322160

PATIENT
  Age: 78 Year
  Sex: Female

DRUGS (12)
  1. TEMESTA [Suspect]
     Active Substance: LORAZEPAM
     Dosage: UNK
  2. VALSARTAN. [Concomitant]
     Active Substance: VALSARTAN
  3. EUTHYROX [Concomitant]
     Active Substance: LEVOTHYROXINE SODIUM
  4. FLAGYL [Concomitant]
     Active Substance: METRONIDAZOLE\METRONIDAZOLE HYDROCHLORIDE
     Dosage: UNK
     Dates: start: 20160517
  5. COMILORID [Suspect]
     Active Substance: HYDROCHLOROTHIAZIDE
  6. VI DE3 [Concomitant]
  7. SYMBICORT [Concomitant]
     Active Substance: BUDESONIDE\FORMOTEROL FUMARATE DIHYDRATE
  8. VIMOVO [Suspect]
     Active Substance: ESOMEPRAZOLE MAGNESIUM\NAPROXEN
  9. BILOL [Concomitant]
     Active Substance: BISOPROLOL
  10. PANTOZOL [Suspect]
     Active Substance: PANTOPRAZOLE SODIUM
     Dosage: UNK
  11. DEROXAT [Suspect]
     Active Substance: PAROXETINE HYDROCHLORIDE
  12. AMLODIPIN /00972401/ [Concomitant]
     Active Substance: AMLODIPINE BESYLATE

REACTIONS (1)
  - Hyponatraemia [Recovered/Resolved]

NARRATIVE: CASE EVENT DATE: 20160519
